FAERS Safety Report 11222389 (Version 2)
Quarter: 2015Q3

REPORT INFORMATION
  Report Type: Report from Study
  Country: US (occurrence: US)
  Receive Date: 20150626
  Receipt Date: 20150729
  Transmission Date: 20151125
  Serious: No
  Sender: FDA-Public Use
  Company Number: US-EXELIXIS-CABO-15005346

PATIENT
  Sex: Male

DRUGS (1)
  1. CABOZANTINIB [Suspect]
     Active Substance: CABOZANTINIB
     Indication: GASTROINTESTINAL NEOPLASM
     Dosage: 140 MG, QD
     Route: 048
     Dates: start: 20150321

REACTIONS (11)
  - Blood calcitonin increased [Unknown]
  - Dysphonia [Unknown]
  - Constipation [Unknown]
  - Mouth ulceration [Unknown]
  - Off label use [Unknown]
  - Diarrhoea [Unknown]
  - Oropharyngeal pain [Unknown]
  - Decreased appetite [Unknown]
  - Rash [Unknown]
  - Dysgeusia [Unknown]
  - Hyperkeratosis [Unknown]
